FAERS Safety Report 7892177-0 (Version None)
Quarter: 2011Q4

REPORT INFORMATION
  Report Type: 
  Country: None (occurrence: None)
  Receive Date: 20111104
  Receipt Date: 20111025
  Transmission Date: 20120403
  Serious: Yes (Hospitalization)
  Sender: FDA-Public Use
  Company Number: FR-ASTRAZENECA-2011SE39055

PATIENT
  Age: 61 Year
  Sex: Female
  Weight: 40 kg

DRUGS (3)
  1. NAROPIN [Suspect]
     Indication: ANAESTHESIA
     Route: 013
     Dates: start: 20110607, end: 20110609
  2. ANESTHETIC DRUGS NOT SPECIFIED [Concomitant]
     Indication: GENERAL ANAESTHESIA
  3. INDAPAMIDE [Concomitant]

REACTIONS (2)
  - INCORRECT ROUTE OF DRUG ADMINISTRATION [None]
  - GUILLAIN-BARRE SYNDROME [None]
